FAERS Safety Report 8789896 (Version 2)
Quarter: 2012Q4

REPORT INFORMATION
  Report Type: 
  Country: JP (occurrence: JP)
  Receive Date: 20120917
  Receipt Date: 20120917
  Transmission Date: 20130627
  Serious: Yes (Death, Other)
  Sender: FDA-Public Use
  Company Number: JP-PFIZER INC-2012009970

PATIENT
  Age: 70 Year
  Sex: Female

DRUGS (3)
  1. FARMORUBICIN [Suspect]
     Indication: BREAST CANCER
     Dosage: 75 mg/m2, 1x/day
  2. FLUOROURACIL [Suspect]
     Indication: BREAST CANCER
  3. CYCLOPHOSPHAMIDE [Suspect]
     Indication: BREAST CANCER

REACTIONS (8)
  - Cardiac failure [Fatal]
  - Pulmonary oedema [Unknown]
  - Arrhythmia [Unknown]
  - Blood pressure decreased [Unknown]
  - Haematemesis [Unknown]
  - White blood cell count decreased [Unknown]
  - Nausea [Unknown]
  - Vomiting [Unknown]
